FAERS Safety Report 6593563-1 (Version None)
Quarter: 2010Q1

REPORT INFORMATION
  Report Type: 
  Country: None (occurrence: None)
  Receive Date: 20100222
  Receipt Date: 20090724
  Transmission Date: 20100710
  Serious: No
  Sender: FDA-Public Use
  Company Number: US-BRISTOL-MYERS SQUIBB COMPANY-14715007

PATIENT
  Age: 52 Year
  Sex: Female

DRUGS (9)
  1. ORENCIA [Suspect]
     Indication: RHEUMATOID ARTHRITIS
     Dates: start: 20090527
  2. MESTINON [Concomitant]
  3. XANAX [Concomitant]
  4. NAPROXEN [Concomitant]
  5. CYMBALTA [Concomitant]
  6. LYRICA [Concomitant]
  7. PROVIGIL [Concomitant]
  8. PERCOCET [Concomitant]
  9. XODOL [Concomitant]

REACTIONS (1)
  - WHEEZING [None]
